FAERS Safety Report 7602567-9 (Version None)
Quarter: 2011Q3

REPORT INFORMATION
  Report Type: 
  Country: None (occurrence: None)
  Receive Date: 20110712
  Receipt Date: 20110705
  Transmission Date: 20111222
  Serious: Yes (Life-Threatening, Hospitalization, Disabling)
  Sender: FDA-Public Use
  Company Number: JP-CELGENEUS-087-21880-11021715

PATIENT
  Sex: Male

DRUGS (20)
  1. DEXAMETHASONE [Concomitant]
     Indication: MULTIPLE MYELOMA
     Dosage: 33 MILLIGRAM
     Route: 041
     Dates: start: 20101208, end: 20101215
  2. RABEPRAZOLE SODIUM [Concomitant]
     Indication: PROPHYLAXIS
     Dosage: 10 MILLIGRAM
     Route: 048
     Dates: start: 20091101
  3. DIFLUCAN [Concomitant]
     Indication: PROPHYLAXIS
     Dosage: 100 MILLIGRAM
     Route: 048
     Dates: start: 20091101
  4. DEXAMETHASONE [Concomitant]
     Indication: REFRACTORY CANCER
     Dosage: 33 MILLIGRAM
     Route: 041
     Dates: start: 20110412, end: 20110415
  5. PREDNISOLONE [Concomitant]
     Dosage: 5 MILLIGRAM
     Route: 048
     Dates: start: 20091101
  6. SULFAMETHOXAZOLE [Concomitant]
     Dosage: 1 TABLET
     Route: 048
     Dates: end: 20110415
  7. BIOFERMIN R [Concomitant]
     Indication: PROPHYLAXIS
     Dosage: 3 TABLET
     Route: 048
     Dates: end: 20110415
  8. REVLIMID [Suspect]
     Indication: MULTIPLE MYELOMA
     Dosage: 10 MILLIGRAM
     Route: 048
     Dates: start: 20101208, end: 20101220
  9. REVLIMID [Suspect]
     Indication: REFRACTORY CANCER
     Dosage: 5 MILLIGRAM
     Route: 048
     Dates: start: 20110412, end: 20110415
  10. BIOFERMIN [Concomitant]
     Indication: PROPHYLAXIS
     Dosage: 3 TABLET
     Route: 048
     Dates: start: 20091101
  11. FAMOTIDINE [Concomitant]
     Indication: PROPHYLAXIS
     Dosage: 40 MILLIGRAM
     Route: 048
     Dates: start: 20110101, end: 20110415
  12. ASPIRIN [Concomitant]
     Indication: PROPHYLAXIS
     Dosage: 100 MILLIGRAM
     Route: 048
     Dates: start: 20101208
  13. ALLOPURINOL [Concomitant]
     Dosage: 300 MILLIGRAM
     Route: 048
     Dates: end: 20110415
  14. ALLEGRA [Concomitant]
     Dosage: 120 MILLIGRAM
     Route: 048
     Dates: start: 20091101
  15. BIO-THREE [Concomitant]
     Indication: PROPHYLAXIS
     Dosage: 3 GRAM
     Route: 048
     Dates: end: 20110415
  16. ALLOPURINOL [Concomitant]
     Dosage: 200 MILLIGRAM
     Route: 048
     Dates: start: 20091101
  17. METHYLCOBAL [Concomitant]
     Dosage: 1500 MICROGRAM
     Route: 048
     Dates: start: 20091101
  18. ALLEGRA [Concomitant]
     Dosage: 2 TABLET
     Route: 048
     Dates: end: 20110415
  19. PREDNISOLONE [Concomitant]
     Dosage: 5 MILLIGRAM
     Route: 048
     Dates: end: 20110415
  20. SULFAMETHOXAZOLE [Concomitant]
     Indication: PROPHYLAXIS
     Dosage: 2 TABLET
     Route: 048
     Dates: start: 20091101

REACTIONS (7)
  - NEUTROPENIA [None]
  - INFECTION [None]
  - SEPSIS [None]
  - NEUTROPHIL COUNT DECREASED [None]
  - JAUNDICE [None]
  - PLATELET COUNT DECREASED [None]
  - THROMBOCYTOPENIA [None]
